FAERS Safety Report 8589957-5 (Version None)
Quarter: 2012Q3

REPORT INFORMATION
  Report Type: 
  Country: None (occurrence: None)
  Receive Date: 20120813
  Receipt Date: 20120803
  Transmission Date: 20120928
  Serious: Yes (Death)
  Sender: FDA-Public Use
  Company Number: US-AMGEN-USASP2012049092

PATIENT

DRUGS (5)
  1. BLOOD CELLS [Concomitant]
     Indication: ANAEMIA
  2. CHEMOTHERAPEUTICS [Concomitant]
     Indication: ANAEMIA
  3. EPOGEN [Suspect]
     Indication: ANAEMIA
  4. ARANESP [Suspect]
     Indication: ANAEMIA
  5. BLOOD TRANSFUSION, AUXILIARY PRODUCTS [Concomitant]
     Indication: ANAEMIA

REACTIONS (1)
  - DEATH [None]
